FAERS Safety Report 5688363-0 (Version None)
Quarter: 2008Q1

REPORT INFORMATION
  Report Type: 
  Country: None (occurrence: None)
  Receive Date: 20080328
  Receipt Date: 20080328
  Transmission Date: 20080703
  Serious: No
  Sender: FDA-Public Use
  Company Number: None

PATIENT
  Age: 61 Year
  Sex: Male
  Weight: 74.8435 kg

DRUGS (1)
  1. TEGRETOL [Suspect]
     Indication: BIPOLAR DISORDER
     Dates: start: 20080318, end: 20080327

REACTIONS (4)
  - ALEXIA [None]
  - APHASIA [None]
  - CEREBELLAR SYNDROME [None]
  - NYSTAGMUS [None]
